FAERS Safety Report 5934213-4 (Version None)
Quarter: 2008Q4

REPORT INFORMATION
  Report Type: 
  Country: None (occurrence: None)
  Receive Date: 20081028
  Receipt Date: 20081028
  Transmission Date: 20090506
  Serious: Yes (Other)
  Sender: FDA-Public Use
  Company Number: None

PATIENT
  Sex: Male
  Weight: 85.7298 kg

DRUGS (3)
  1. AVELOX [Suspect]
     Indication: BRONCHITIS
  2. ZYRTEC [Concomitant]
  3. COUMADIN [Concomitant]

REACTIONS (2)
  - ARTHRALGIA [None]
  - UNEVALUABLE EVENT [None]
